FAERS Safety Report 7327996-2 (Version None)
Quarter: 2011Q1

REPORT INFORMATION
  Report Type: 
  Country: None (occurrence: None)
  Receive Date: 20110303
  Receipt Date: 20110222
  Transmission Date: 20110831
  Serious: Yes (Other)
  Sender: FDA-Public Use
  Company Number: US-JNJFOC-20110206987

PATIENT

DRUGS (12)
  1. DEXAMETHASONE [Suspect]
     Dosage: ORAL/INTRAVENOUS, ON DAYS 1, 2, 4, 5, 8, 9, 11 AND 12, 28 DAY CYCLE, 2 CYCLES ({ PARTIAL RESPONDERS)
     Route: 065
  2. TRIMETHOPRIM + SULFAMETHOXAZOLE [Concomitant]
     Indication: PROPHYLAXIS
     Route: 065
  3. ASPIRIN [Concomitant]
     Indication: THROMBOSIS PROPHYLAXIS
     Route: 065
  4. DOXORUBICIN HCL [Suspect]
     Indication: MULTIPLE MYELOMA
     Dosage: ON DAY 4 OF A 21 DAY CYCLE, FOR 3 CYCLES
     Route: 042
  5. FLUCONAZOLE [Concomitant]
     Indication: PROPHYLAXIS
     Route: 065
  6. DEXAMETHASONE [Suspect]
     Indication: MULTIPLE MYELOMA
     Dosage: ORAL OR INTRAVENOUS, ON DAYS 1, 2, 4, 5, 8, 9, 11 AND 12 ON A 21 DAY CYCLE, FOR 3 CYCLES
     Route: 065
  7. ACYCLOVIR [Concomitant]
     Indication: PROPHYLAXIS
     Route: 065
  8. DEXAMETHASONE [Suspect]
     Dosage: ORAL OF INTRAVENOUS, ON DAYS 17-20 OF A 28 DAY CYCLE, FOR 2 CYCLES (FOR { PARTIAL RESPONDERS)
     Route: 065
  9. BORTEZOMIB [Suspect]
     Dosage: ON DAYS 1, 4, 8 AND 11 OVER 28 DAYS, FOR 2 CYCLES (FOR { PARTIAL RESPONDERS)
     Route: 042
  10. DEXAMETHASONE [Suspect]
     Dosage: ON DAYS 1-4, 9-12 AND 17-20 OF A 28 DAY CYCLE, FOR 2 CYCLES
     Route: 065
  11. UNSPECIFIED LOW-MOLECULAR WEIGHT HEPARIN [Concomitant]
     Indication: THROMBOSIS PROPHYLAXIS
     Route: 065
  12. BORTEZOMIB [Suspect]
     Indication: MULTIPLE MYELOMA
     Dosage: ON DAYS 1, 4, 8 AND 11 OF A 21 DAY CYCLE, FOR 3 CYCLES
     Route: 042

REACTIONS (1)
  - ATRIAL FIBRILLATION [None]
